FAERS Safety Report 22367137 (Version 1)
Quarter: 2023Q2

REPORT INFORMATION
  Report Type: Spontaneous
  Country: FR (occurrence: FR)
  Receive Date: 20230525
  Receipt Date: 20230525
  Transmission Date: 20230721
  Serious: Yes (Hospitalization)
  Sender: FDA-Public Use
  Company Number: None

PATIENT
  Age: 87 Year
  Sex: Male
  Weight: 73 kg

DRUGS (2)
  1. PIPERACILLIN SODIUM\TAZOBACTAM SODIUM [Suspect]
     Active Substance: PIPERACILLIN SODIUM\TAZOBACTAM SODIUM
     Indication: Oesophageal perforation
     Dosage: 16 GRAM, QD
     Route: 042
     Dates: start: 20230329, end: 20230411
  2. VANCOMYCIN [Suspect]
     Active Substance: VANCOMYCIN
     Indication: Oesophageal perforation
     Dosage: 2.2 GRAM, QD
     Route: 042
     Dates: start: 20230329, end: 20230411

REACTIONS (2)
  - Catheter site thrombosis [Recovering/Resolving]
  - Infusion site thrombosis [Recovering/Resolving]

NARRATIVE: CASE EVENT DATE: 20230401
